FAERS Safety Report 23831491 (Version 1)
Quarter: 2024Q2

REPORT INFORMATION
  Report Type: Spontaneous
  Country: US (occurrence: None)
  Receive Date: 20240507
  Receipt Date: 20240507
  Transmission Date: 20240715
  Serious: Yes (Other)
  Sender: FDA-Public Use
  Company Number: None

PATIENT
  Age: 42 Year
  Sex: Male
  Weight: 78.75 kg

DRUGS (4)
  1. HERBALS\MITRAGYNINE [Suspect]
     Active Substance: HERBALS\MITRAGYNINE
     Indication: Pain
  2. HERBALS\MITRAGYNINE [Suspect]
     Active Substance: HERBALS\MITRAGYNINE
     Indication: Anxiety
  3. TESTOSTERONE [Concomitant]
  4. GLUCOSAMINE [Concomitant]

REACTIONS (11)
  - Drug dependence [None]
  - Withdrawal syndrome [None]
  - Vomiting [None]
  - Diarrhoea [None]
  - Myalgia [None]
  - Pain [None]
  - Pyrexia [None]
  - Aggression [None]
  - Irritability [None]
  - Somnolence [None]
  - Partner stress [None]

NARRATIVE: CASE EVENT DATE: 20240507
